FAERS Safety Report 15282002 (Version 1)
Quarter: 2018Q3

REPORT INFORMATION
  Report Type: Spontaneous
  Country: DE (occurrence: DE)
  Receive Date: 20180815
  Receipt Date: 20180815
  Transmission Date: 20181010
  Serious: Yes (Other)
  Sender: FDA-Public Use
  Company Number: DE-ANIPHARMA-2018-DE-000137

PATIENT
  Age: 35 Year
  Sex: Female
  Weight: 54 kg

DRUGS (9)
  1. CERGEM [Concomitant]
     Active Substance: GEMEPROST
     Route: 067
     Dates: start: 20180502, end: 20180503
  2. MIFEGYNE [Concomitant]
     Active Substance: MIFEPRISTONE
     Route: 048
     Dates: start: 20180502, end: 20180503
  3. NEPRESOL (DIHYDRALAZINE MESILATE) [Suspect]
     Active Substance: DIHYDRALAZINE MESYLATE
     Dosage: 50 MG DAILY
     Route: 048
     Dates: start: 20171209, end: 20180504
  4. PANTOPRAZOLE [Suspect]
     Active Substance: PANTOPRAZOLE
     Dosage: 40 MG UNK
     Route: 048
  5. TORASEMIDE [Concomitant]
     Active Substance: TORSEMIDE
     Route: 048
  6. CANDESARTAN CILEXETIL. [Suspect]
     Active Substance: CANDESARTAN CILEXETIL
     Dosage: 32 MG UNK
     Route: 048
  7. METOPROLOL SUCCINATE. [Suspect]
     Active Substance: METOPROLOL SUCCINATE
     Dosage: 190 [MG/D ]/ INITIA 2 X 95MG/D, THEN DOSAGE DECREASE TO 2 X 47.5MG/D
     Route: 048
     Dates: start: 20171209, end: 20180504
  8. LAMOTRIGINE. [Suspect]
     Active Substance: LAMOTRIGINE
     Dosage: 100 [MG/D ]/ 50 TO 100 MG/D
     Route: 048
     Dates: start: 20171209, end: 20180504
  9. DORZOLAMIDE [Concomitant]
     Active Substance: DORZOLAMIDE

REACTIONS (5)
  - Pregnancy [None]
  - Contraindicated product administered [None]
  - Oligohydramnios [Unknown]
  - Abortion induced [None]
  - Maternal exposure during pregnancy [None]
